FAERS Safety Report 19295060 (Version 2)
Quarter: 2021Q2

REPORT INFORMATION
  Report Type: Report from Study
  Country: US (occurrence: US)
  Receive Date: 20210524
  Receipt Date: 20210609
  Transmission Date: 20210717
  Serious: Yes (Death, Hospitalization)
  Sender: FDA-Public Use
  Company Number: US-BAUSCH-BL-2021-017905

PATIENT
  Age: 83 Year
  Sex: Male
  Weight: 95.34 kg

DRUGS (1)
  1. XIFAXAN [Suspect]
     Active Substance: RIFAXIMIN
     Indication: HEPATIC CIRRHOSIS
     Dosage: STARTED TWO AND HALF YEARS AGO
     Route: 048
     Dates: start: 2018

REACTIONS (2)
  - Colitis ischaemic [Unknown]
  - Death [Fatal]

NARRATIVE: CASE EVENT DATE: 20210506
